FAERS Safety Report 8615557-4 (Version None)
Quarter: 2012Q3

REPORT INFORMATION
  Report Type: 
  Country: None (occurrence: None)
  Receive Date: 20120823
  Receipt Date: 20120809
  Transmission Date: 20120928
  Serious: Yes (Other)
  Sender: FDA-Public Use
  Company Number: GB-ARROW-2012-14729

PATIENT
  Sex: Female

DRUGS (2)
  1. ALENDRONATE SODIUM [Suspect]
     Indication: PRODUCT USED FOR UNKNOWN INDICATION
     Dosage: UNKNOWN
     Route: 065
     Dates: start: 20110801
  2. LETROZOLE [Suspect]
     Indication: PRODUCT USED FOR UNKNOWN INDICATION
     Dosage: UNKNOWN
     Route: 065

REACTIONS (10)
  - APHASIA [None]
  - DRUG INTERACTION [None]
  - MYALGIA [None]
  - CONDITION AGGRAVATED [None]
  - SPINAL COMPRESSION FRACTURE [None]
  - OSTEOPOROSIS [None]
  - MONOPLEGIA [None]
  - MIGRAINE [None]
  - BONE PAIN [None]
  - ARTHRALGIA [None]
